FAERS Safety Report 6050185-9 (Version None)
Quarter: 2009Q1

REPORT INFORMATION
  Report Type: 
  Country: None (occurrence: None)
  Receive Date: 20090121
  Receipt Date: 20090121
  Transmission Date: 20090719
  Serious: No
  Sender: FDA-Public Use
  Company Number: None

PATIENT
  Age: 73 Year
  Sex: Male
  Weight: 96.2 kg

DRUGS (2)
  1. WARFARIN SODIUM [Suspect]
     Indication: ATRIAL FIBRILLATION
     Dates: start: 20081121, end: 20081220
  2. CLOPIDOGREL [Suspect]
     Indication: PERCUTANEOUS CORONARY INTERVENTION
     Dates: start: 20081125, end: 20081220

REACTIONS (9)
  - ANAEMIA [None]
  - ATRIAL FIBRILLATION [None]
  - BLOOD CREATINE INCREASED [None]
  - CONDITION AGGRAVATED [None]
  - FLANK PAIN [None]
  - HAEMATURIA [None]
  - HAEMORRHAGE [None]
  - INTERNATIONAL NORMALISED RATIO INCREASED [None]
  - PLATELET COUNT DECREASED [None]
